FAERS Safety Report 25307393 (Version 2)
Quarter: 2025Q4

REPORT INFORMATION
  Report Type: Spontaneous
  Country: US (occurrence: US)
  Receive Date: 20250513
  Receipt Date: 20251019
  Transmission Date: 20260118
  Serious: No
  Sender: BRISTOL-MYERS SQUIBB COMPANY
  Company Number: US-BRISTOL-MYERS SQUIBB COMPANY-2025-069143

PATIENT
  Age: 69 Year
  Sex: Male

DRUGS (2)
  1. POMALYST [Suspect]
     Active Substance: POMALIDOMIDE
     Indication: Plasma cell myeloma
     Dosage: FREQUENCY: OTHER.
  2. POMALYST [Suspect]
     Active Substance: POMALIDOMIDE
     Dosage: 1 MG

REACTIONS (3)
  - Hypersensitivity [Unknown]
  - Cough [Unknown]
  - Nasopharyngitis [Unknown]
